FAERS Safety Report 22287521 (Version 2)
Quarter: 2023Q2

REPORT INFORMATION
  Report Type: Spontaneous
  Country: CN (occurrence: CN)
  Receive Date: 20230505
  Receipt Date: 20230509
  Transmission Date: 20230722
  Serious: Yes (Other)
  Sender: FDA-Public Use
  Company Number: CN-002147023-NVSC2023CN099267

PATIENT
  Age: 91 Year
  Sex: Male
  Weight: 58 kg

DRUGS (3)
  1. VORICONAZOLE [Suspect]
     Active Substance: VORICONAZOLE
     Indication: Septic shock
     Dosage: 200 MG, BID
     Route: 048
     Dates: start: 20230309, end: 20230316
  2. VORICONAZOLE [Suspect]
     Active Substance: VORICONAZOLE
     Indication: Toxic shock syndrome
  3. VORICONAZOLE [Suspect]
     Active Substance: VORICONAZOLE
     Indication: Fungal infection

REACTIONS (1)
  - Liver injury [Recovering/Resolving]

NARRATIVE: CASE EVENT DATE: 20230314
